FAERS Safety Report 5179320-1 (Version None)
Quarter: 2006Q4

REPORT INFORMATION
  Report Type: 
  Country: None (occurrence: None)
  Receive Date: 20061219
  Receipt Date: 20061212
  Transmission Date: 20070319
  Serious: Yes (Other)
  Sender: FDA-Public Use
  Company Number: BR-GLAXOSMITHKLINE-A0631815A

PATIENT
  Sex: Female

DRUGS (1)
  1. CLAVULIN [Suspect]
     Indication: DRUG USE FOR UNKNOWN INDICATION
     Dosage: 875MG UNKNOWN
     Route: 048

REACTIONS (1)
  - DIARRHOEA HAEMORRHAGIC [None]
